FAERS Safety Report 10508201 (Version 1)
Quarter: 2014Q4

REPORT INFORMATION
  Report Type: Spontaneous
  Country: US (occurrence: None)
  Receive Date: 20141007
  Receipt Date: 20141007
  Transmission Date: 20150528
  Serious: Yes (Other)
  Sender: FDA-Public Use
  Company Number: VAL_03433_2014

PATIENT
  Age: 14 Year
  Sex: Female

DRUGS (16)
  1. SODIUM BICARBONATE (UNKNOWN) [Concomitant]
  2. PRILOSEC [Concomitant]
     Active Substance: OMEPRAZOLE MAGNESIUM
  3. NUTROPIN AQ [Suspect]
     Active Substance: SOMATROPIN
     Indication: CHRONIC KIDNEY DISEASE
     Dosage: 7X/WEEK
     Route: 058
  4. NIFEREX /01214501/ (UNKNOWN) [Concomitant]
  5. COREG (UNKNOWN) [Concomitant]
  6. ASA (UNKNOWN) [Concomitant]
  7. CALCITRIOL. [Suspect]
     Active Substance: CALCITRIOL
     Indication: PRODUCT USED FOR UNKNOWN INDICATION
     Dosage: 3X/WEEK (NOT OTHERWISE SPECIFIED)
     Route: 042
  8. ERGOCALCIFEROL. [Concomitant]
     Active Substance: ERGOCALCIFEROL
  9. MYFORTIC (UNKNOWN) [Concomitant]
  10. COLACE (UNKNOWN) [Concomitant]
  11. PREDNISONE (UNKNOWN) [Concomitant]
     Active Substance: PREDNISONE
  12. EPOGEN (UNKNOWN) [Concomitant]
  13. PHOSLO [Concomitant]
     Active Substance: CALCIUM ACETATE
  14. NEPHROCAPS /01801401/ [Concomitant]
  15. RAPAMUNE (UNKNOWN) [Concomitant]
  16. DAPSONE (UNKNOWN) [Concomitant]
     Active Substance: DAPSONE

REACTIONS (4)
  - Kidney transplant rejection [None]
  - Metabolic acidosis [None]
  - Oedema peripheral [None]
  - Periorbital oedema [None]

NARRATIVE: CASE EVENT DATE: 201101
